FAERS Safety Report 9603165 (Version 2)
Quarter: 2015Q2

REPORT INFORMATION
  Report Type: Spontaneous
  Country: CH (occurrence: CH)
  Receive Date: 20131007
  Receipt Date: 20150521
  Transmission Date: 20150821
  Serious: Yes (Hospitalization)
  Sender: FDA-Public Use
  Company Number: PHHY2013CH109410

PATIENT
  Age: 61 Year
  Sex: Male

DRUGS (7)
  1. VANCOMYCIN [Concomitant]
     Active Substance: VANCOMYCIN
     Indication: PRODUCT USED FOR UNKNOWN INDICATION
     Route: 065
  2. RIFAMPICIN [Concomitant]
     Active Substance: RIFAMPIN
     Indication: PRODUCT USED FOR UNKNOWN INDICATION
     Route: 065
  3. GENTAMICIN. [Concomitant]
     Active Substance: GENTAMICIN
     Indication: PRODUCT USED FOR UNKNOWN INDICATION
     Route: 065
  4. CEFTRIAXONE. [Suspect]
     Active Substance: CEFTRIAXONE
     Indication: PRODUCT USED FOR UNKNOWN INDICATION
     Route: 042
  5. CIPROFLOXACIN. [Concomitant]
     Active Substance: CIPROFLOXACIN
     Indication: PRODUCT USED FOR UNKNOWN INDICATION
     Dosage: 750 MG, BID
     Route: 048
  6. CEFTRIAXONE. [Suspect]
     Active Substance: CEFTRIAXONE
     Dosage: 2 G, QD
     Route: 065
  7. RIFAMPICIN [Concomitant]
     Active Substance: RIFAMPIN
     Dosage: 450 MG, BID
     Route: 065

REACTIONS (16)
  - Neutropenia [Recovered/Resolved]
  - Endocarditis bacterial [Recovered/Resolved]
  - Abdominal pain [Recovered/Resolved]
  - Splenomegaly [Recovered/Resolved]
  - Colitis [Unknown]
  - Stomatitis [Recovered/Resolved]
  - Spinal pain [Recovered/Resolved]
  - Diarrhoea [Recovered/Resolved]
  - Agranulocytosis [Recovered/Resolved]
  - Aortic valve incompetence [Recovered/Resolved]
  - Abscess oral [Recovered/Resolved]
  - C-reactive protein increased [Unknown]
  - Musculoskeletal pain [Recovered/Resolved]
  - Pain in extremity [Recovered/Resolved]
  - Visual impairment [Recovered/Resolved]
  - Pyrexia [Recovered/Resolved]
